FAERS Safety Report 23246296 (Version 2)
Quarter: 2023Q4

REPORT INFORMATION
  Report Type: Spontaneous
  Country: BR (occurrence: BR)
  Receive Date: 20231130
  Receipt Date: 20231211
  Transmission Date: 20240109
  Serious: Yes (Death, Life-Threatening, Hospitalization, Other)
  Sender: FDA-Public Use
  Company Number: BR-MLMSERVICE-20231117-4660307-1

PATIENT
  Sex: Female
  Weight: 0.8 kg

DRUGS (4)
  1. MEROPENEM [Suspect]
     Active Substance: MEROPENEM
     Indication: Enterobacter test positive
     Dosage: UNK
  2. CHLORAMPHENICOL [Suspect]
     Active Substance: CHLORAMPHENICOL
     Indication: Enterobacter test positive
     Dosage: UNK
  3. AMPICILLIN [Suspect]
     Active Substance: AMPICILLIN
     Indication: Neonatal infection
     Dosage: UNK
  4. GENTAMICIN [Suspect]
     Active Substance: GENTAMICIN
     Indication: Neonatal infection
     Dosage: UNK

REACTIONS (5)
  - Fungaemia [Fatal]
  - Acute kidney injury [Fatal]
  - Sepsis neonatal [Fatal]
  - Cardiogenic shock [Fatal]
  - Off label use [Unknown]
